FAERS Safety Report 7319349-8 (Version None)
Quarter: 2011Q1

REPORT INFORMATION
  Report Type: 
  Country: None (occurrence: None)
  Receive Date: 20110228
  Receipt Date: 20100304
  Transmission Date: 20110831
  Serious: No
  Sender: FDA-Public Use
  Company Number: A0843888A

PATIENT
  Age: 24 Year
  Sex: Female
  Weight: 59.1 kg

DRUGS (5)
  1. LAMICTAL [Suspect]
     Indication: BIPOLAR DISORDER
     Dosage: 100MG PER DAY
     Route: 048
     Dates: start: 20100111, end: 20100208
  2. TEMAZEPAM [Concomitant]
  3. VALIUM [Concomitant]
  4. LEXAPRO [Concomitant]
  5. SEROQUEL [Concomitant]

REACTIONS (1)
  - RASH [None]
